FAERS Safety Report 13423575 (Version 1)
Quarter: 2017Q2

REPORT INFORMATION
  Report Type: Other
  Country: CA (occurrence: CA)
  Receive Date: 20170410
  Receipt Date: 20170410
  Transmission Date: 20170830
  Serious: Yes (Other)
  Sender: FDA-Public Use
  Company Number: CA-VALIDUS PHARMACEUTICALS LLC-CA-2017VAL000491

PATIENT
  Age: 76 Year
  Sex: Male

DRUGS (6)
  1. DIANEAL [Suspect]
     Active Substance: CALCIUM CHLORIDE\DEXTROSE\MAGNESIUM CHLORIDE\SODIUM CHLORIDE\SODIUM LACTATE
     Indication: CHRONIC KIDNEY DISEASE
     Dosage: 5 LITRE(S);UNKNOWN (CAPD SOLUTION)
     Route: 033
  2. POTASSIUM CHLORIDE. [Suspect]
     Active Substance: POTASSIUM CHLORIDE
     Indication: BLOOD POTASSIUM ABNORMAL
     Dosage: 2 DOSAGE FORM; TWICE A DAY
     Route: 065
  3. LASIX [Suspect]
     Active Substance: FUROSEMIDE
     Indication: CHRONIC KIDNEY DISEASE
     Dosage: 40 MILLIGRAM(S);DAILY
     Route: 065
  4. EXTRANEAL [Suspect]
     Active Substance: CALCIUM CHLORIDE\ICODEXTRIN\MAGNESIUM CHLORIDE\SODIUM CHLORIDE\SODIUM LACTATE
     Indication: CHRONIC KIDNEY DISEASE
     Dosage: 2 LITRE(S);DAILY
     Route: 033
  5. DIANEAL [Suspect]
     Active Substance: CALCIUM CHLORIDE\DEXTROSE\MAGNESIUM CHLORIDE\SODIUM CHLORIDE\SODIUM LACTATE
     Dosage: 5 LITRE(S);UNKNOWN
     Route: 033
  6. POTASSIUM CHLORIDE. [Suspect]
     Active Substance: POTASSIUM CHLORIDE
     Dosage: 1 DOSAGE FORM; EVERY OTHER WEEK
     Route: 065

REACTIONS (12)
  - Discomfort [Unknown]
  - Rales [Unknown]
  - Fluid overload [Unknown]
  - Secretion discharge [Unknown]
  - Bone metabolism disorder [Unknown]
  - Atelectasis [Unknown]
  - Breath sounds abnormal [Unknown]
  - Musculoskeletal stiffness [Unknown]
  - Hypoalbuminaemia [Unknown]
  - Hyponatraemia [Unknown]
  - Nephrogenic anaemia [Unknown]
  - Blood potassium abnormal [Unknown]
